FAERS Safety Report 5255676-6 (Version None)
Quarter: 2007Q1

REPORT INFORMATION
  Report Type: 
  Country: None (occurrence: None)
  Receive Date: 20070305
  Receipt Date: 20070221
  Transmission Date: 20070707
  Serious: Yes (Hospitalization, Other)
  Sender: FDA-Public Use
  Company Number: US-PFIZER INC-2006153129

PATIENT
  Sex: Female

DRUGS (17)
  1. LYRICA [Suspect]
     Indication: NEURALGIA
     Route: 048
  2. EFFEXOR XR [Concomitant]
  3. ALL OTHER THERAPEUTIC PRODUCTS [Concomitant]
  4. FUROSEMIDE [Concomitant]
  5. K-DUR 10 [Concomitant]
  6. KLONOPIN [Concomitant]
  7. LEVOTHYROXINE SODIUM [Concomitant]
  8. LIPITOR [Concomitant]
  9. NASONEX [Concomitant]
  10. OGEN [Concomitant]
  11. PREVACID [Concomitant]
  12. PRINZIDE [Concomitant]
  13. SINEMET CR [Concomitant]
  14. TEMAZEPAM [Concomitant]
  15. TRAZODONE HCL [Concomitant]
  16. VICODIN [Concomitant]
     Route: 048
  17. BACLOFEN [Concomitant]
     Route: 048

REACTIONS (5)
  - AMNESIA [None]
  - BLOOD CREATINE PHOSPHOKINASE INCREASED [None]
  - CONFUSIONAL STATE [None]
  - DRUG TOXICITY [None]
  - DYSKINESIA [None]
